FAERS Safety Report 14290816 (Version 1)
Quarter: 2017Q4

REPORT INFORMATION
  Report Type: Spontaneous
  Country: CA (occurrence: CA)
  Receive Date: 20171215
  Receipt Date: 20171215
  Transmission Date: 20180321
  Serious: Yes (Other)
  Sender: FDA-Public Use
  Company Number: CA-PFIZER INC-2016532975

PATIENT
  Age: 54 Year
  Sex: Female

DRUGS (2)
  1. XELJANZ [Suspect]
     Active Substance: TOFACITINIB CITRATE
     Indication: RHEUMATOID ARTHRITIS
     Dosage: 5 MG, 2X/DAY
     Route: 048
     Dates: start: 20161107, end: 20161111
  2. XELJANZ [Suspect]
     Active Substance: TOFACITINIB CITRATE
     Dosage: 5 MG, 2X/DAY
     Route: 048
     Dates: start: 20161114, end: 2017

REACTIONS (7)
  - Root canal infection [Unknown]
  - Ear infection [Unknown]
  - Tinnitus [Recovered/Resolved]
  - Nasal congestion [Recovered/Resolved]
  - Intentional product misuse [Unknown]
  - Exostosis [Unknown]
  - Sinusitis [Unknown]

NARRATIVE: CASE EVENT DATE: 201611
